FAERS Safety Report 25592151 (Version 1)
Quarter: 2025Q3

REPORT INFORMATION
  Report Type: Spontaneous
  Country: US (occurrence: None)
  Receive Date: 20250722
  Receipt Date: 20250722
  Transmission Date: 20251020
  Serious: Yes (Life-Threatening, Hospitalization, Disabling)
  Sender: FDA-CTU
  Company Number: None

PATIENT
  Age: 63 Year
  Sex: Female
  Weight: 74.25 kg

DRUGS (1)
  1. CIPRO [Suspect]
     Active Substance: CIPROFLOXACIN HYDROCHLORIDE
     Route: 048

REACTIONS (6)
  - Tendon rupture [None]
  - Meralgia paraesthetica [None]
  - Back pain [None]
  - Arthralgia [None]
  - Muscle contracture [None]
  - Disability [None]

NARRATIVE: CASE EVENT DATE: 20070710
